FAERS Safety Report 9909132 (Version 1)
Quarter: 2014Q1

REPORT INFORMATION
  Report Type: Spontaneous
  Country: FR (occurrence: FR)
  Receive Date: 20140219
  Receipt Date: 20140219
  Transmission Date: 20141002
  Serious: Yes (Hospitalization)
  Sender: FDA-Public Use
  Company Number: FR-TEVA-462931ISR

PATIENT
  Age: 12 Year
  Sex: Male

DRUGS (11)
  1. DOXORUBICINE TEVA 50MG/25ML [Suspect]
     Dosage: 39.5 MILLIGRAM DAILY;
     Route: 042
     Dates: start: 20111107, end: 20111121
  2. LANVIS [Suspect]
     Dosage: 94 MILLIGRAM DAILY;
     Route: 048
     Dates: start: 20111206, end: 20111221
  3. ARACYTINE [Suspect]
     Dosage: 47 MILLIGRAM DAILY;
     Route: 042
     Dates: start: 20111206, end: 20111221
  4. ARACYTINE [Suspect]
     Route: 037
     Dates: start: 20111108, end: 20111207
  5. KIDROLASE [Suspect]
     Route: 042
     Dates: start: 20111109, end: 20111121
  6. DEXAMETHASONE [Suspect]
     Dosage: 3.5 MILLIGRAM DAILY;
     Route: 048
     Dates: start: 20111107, end: 20111120
  7. ELDISINE 5MG [Suspect]
     Dosage: 4.7 MILLIGRAM DAILY;
     Route: 042
     Dates: start: 20111107, end: 20111121
  8. ETOPOSIDE MYLAN [Suspect]
     Route: 042
     Dates: start: 20111206, end: 20111220
  9. ONDANSETRON MYLAN [Suspect]
     Route: 042
     Dates: start: 20111107, end: 20121220
  10. DEPO MEDROL [Suspect]
     Route: 037
     Dates: start: 20111108, end: 20111207
  11. METHOTREXATE MYLAN [Suspect]
     Route: 037
     Dates: start: 20111108, end: 20111207

REACTIONS (5)
  - Venoocclusive liver disease [Not Recovered/Not Resolved]
  - Febrile bone marrow aplasia [Unknown]
  - Pruritus [Unknown]
  - Petechiae [Unknown]
  - Hepatomegaly [Unknown]
